FAERS Safety Report 9277678 (Version 2)
Quarter: 2013Q4

REPORT INFORMATION
  Report Type: Report from Study
  Country: BR (occurrence: BR)
  Receive Date: 20130508
  Receipt Date: 20131001
  Transmission Date: 20140711
  Serious: Yes (Other)
  Sender: FDA-Public Use
  Company Number: PHHY2013BR044960

PATIENT
  Age: 45 Year
  Sex: Female

DRUGS (7)
  1. GILENYA [Suspect]
     Indication: MULTIPLE SCLEROSIS
     Dosage: 0.5 MG, QD
     Route: 048
     Dates: start: 201203
  2. GILENYA [Suspect]
     Dosage: 0.5 MG, QD
     Route: 048
     Dates: start: 201206, end: 20130623
  3. GILENYA [Suspect]
     Dosage: 0.5 MG, QD
     Route: 048
     Dates: start: 20130923
  4. BACLOFEN [Concomitant]
     Indication: HYPOTONIA
     Dates: start: 2008
  5. CHLOORTALIDON [Concomitant]
     Dosage: 12.5 MG, UNK
  6. CAPOTEN [Concomitant]
     Dosage: 10 MG, UNK
  7. SERTRALINE [Concomitant]
     Indication: DEPRESSION
     Dosage: 50 MG, UNK

REACTIONS (5)
  - Blindness transient [Recovered/Resolved]
  - Eye irritation [Not Recovered/Not Resolved]
  - Eye pruritus [Not Recovered/Not Resolved]
  - Visual impairment [Not Recovered/Not Resolved]
  - Visual acuity reduced [Recovered/Resolved]
